FAERS Safety Report 7813870-1 (Version None)
Quarter: 2011Q4

REPORT INFORMATION
  Report Type: 
  Country: None (occurrence: None)
  Receive Date: 20111014
  Receipt Date: 20110902
  Transmission Date: 20120403
  Serious: Yes (Life-Threatening, Other)
  Sender: FDA-Public Use
  Company Number: JP-PFIZER INC-2011130266

PATIENT
  Age: 85 Year
  Sex: Male
  Weight: 53 kg

DRUGS (1)
  1. ZOSYN [Suspect]
     Indication: PNEUMONIA BACTERIAL
     Dosage: 4.5 G, 4X/DAY
     Route: 041
     Dates: start: 20110526, end: 20110530

REACTIONS (1)
  - LIVER DISORDER [None]
